FAERS Safety Report 8003567-X (Version None)
Quarter: 2011Q4

REPORT INFORMATION
  Report Type: 
  Country: None (occurrence: None)
  Receive Date: 20111222
  Receipt Date: 20111213
  Transmission Date: 20120403
  Serious: Yes (Other)
  Sender: FDA-Public Use
  Company Number: CN-ASTRAZENECA-2011SE75183

PATIENT
  Sex: Female

DRUGS (6)
  1. DEZOCINE [Suspect]
     Route: 042
  2. PROPOFOL [Suspect]
     Indication: ANAESTHESIA
     Dosage: 1.5 MG/KG (4 MG/S)
     Route: 042
  3. PROPOFOL [Suspect]
     Dosage: 4 MG/(KG.H)
     Route: 042
  4. DEZOCINE [Suspect]
     Indication: ANAESTHESIA
     Route: 042
  5. DEZOCINE [Suspect]
     Route: 042
  6. PENEHYCLIDINE HYDROCHLORIDE [Suspect]
     Indication: ANAESTHESIA
     Route: 065

REACTIONS (6)
  - RESPIRATORY DEPRESSION [None]
  - PROCEDURAL PAIN [None]
  - DIZZINESS [None]
  - DYSKINESIA [None]
  - VOMITING [None]
  - NAUSEA [None]
